FAERS Safety Report 6692637-4 (Version None)
Quarter: 2010Q2

REPORT INFORMATION
  Report Type: 
  Country: None (occurrence: None)
  Receive Date: 20100422
  Receipt Date: 20100408
  Transmission Date: 20101027
  Serious: Yes (Other)
  Sender: FDA-Public Use
  Company Number: US-MERCK-1004USA03044

PATIENT
  Sex: Male

DRUGS (13)
  1. PRINIVIL [Suspect]
     Route: 048
  2. METFORMIN HYDROCHLORIDE [Suspect]
     Route: 065
  3. FENOFIBRATE [Suspect]
     Route: 065
  4. PLAVIX [Suspect]
     Route: 065
  5. GABAPENTIN [Suspect]
     Route: 065
  6. COLACE [Suspect]
     Route: 065
  7. CRESTOR [Suspect]
     Route: 065
  8. PEPCID [Suspect]
     Route: 048
  9. OMEPRAZOLE [Suspect]
     Route: 065
  10. INSULIN [Suspect]
     Route: 065
  11. TOPAMAX [Suspect]
     Route: 048
  12. HYDRODIURIL [Suspect]
     Route: 048
  13. ASPIRIN [Suspect]
     Route: 065

REACTIONS (7)
  - CARDIAC DISORDER [None]
  - DIABETES MELLITUS [None]
  - DIABETIC NEUROPATHY [None]
  - HYPERTENSION [None]
  - NEPHROLITHIASIS [None]
  - OBESITY [None]
  - THYROID DISORDER [None]
